FAERS Safety Report 16962278 (Version 1)
Quarter: 2019Q4

REPORT INFORMATION
  Report Type: Spontaneous
  Country: US (occurrence: US)
  Receive Date: 20191024
  Receipt Date: 20191024
  Transmission Date: 20200122
  Serious: Yes (Other)
  Sender: FDA-Public Use
  Company Number: None

PATIENT
  Age: 78 Year
  Sex: Female
  Weight: 73.08 kg

DRUGS (1)
  1. CAPECITABINE. [Suspect]
     Active Substance: CAPECITABINE
     Indication: BREAST CANCER FEMALE
     Dosage: 3500 MG ORAL 2000@AM, 1500@PM?
     Route: 048
     Dates: start: 20190205, end: 20191024

REACTIONS (1)
  - Disease progression [None]

NARRATIVE: CASE EVENT DATE: 20191024
